FAERS Safety Report 8831590 (Version 3)
Quarter: 2013Q2

REPORT INFORMATION
  Report Type: Spontaneous
  Country: US (occurrence: US)
  Receive Date: 20121009
  Receipt Date: 20130530
  Transmission Date: 20140414
  Serious: No
  Sender: FDA-Public Use
  Company Number: US-009507513-1209USA005595

PATIENT
  Sex: Female
  Weight: 63.3 kg

DRUGS (1)
  1. IMPLANON [Suspect]
     Indication: CONTRACEPTION
     Dosage: UNK
     Route: 059
     Dates: start: 20110317, end: 20130417

REACTIONS (2)
  - Metrorrhagia [Recovered/Resolved]
  - Migraine with aura [Unknown]
